FAERS Safety Report 6805130-2 (Version None)
Quarter: 2010Q2

REPORT INFORMATION
  Report Type: 
  Country: None (occurrence: None)
  Receive Date: 20100628
  Receipt Date: 20070821
  Transmission Date: 20101027
  Serious: Yes (Hospitalization, Other)
  Sender: FDA-Public Use
  Company Number: US-PFIZER INC-2007068798

PATIENT
  Sex: Female

DRUGS (1)
  1. SUTENT [Suspect]
     Dates: start: 20070801

REACTIONS (1)
  - LEUKOENCEPHALOPATHY [None]
